FAERS Safety Report 7841984-9 (Version None)
Quarter: 2011Q4

REPORT INFORMATION
  Report Type: 
  Country: None (occurrence: None)
  Receive Date: 20111024
  Receipt Date: 20111024
  Transmission Date: 20120403
  Serious: Yes (Hospitalization, Other)
  Sender: FDA-Public Use
  Company Number: None

PATIENT
  Age: 32 Year
  Sex: Female
  Weight: 114.76 kg

DRUGS (1)
  1. MIRENA [Suspect]

REACTIONS (2)
  - ADENOMYOSIS [None]
  - HAEMORRHAGE [None]
